FAERS Safety Report 14236620 (Version 1)
Quarter: 2017Q4

REPORT INFORMATION
  Report Type: Spontaneous
  Country: US (occurrence: US)
  Receive Date: 20171129
  Receipt Date: 20171129
  Transmission Date: 20180321
  Serious: Yes (Other)
  Sender: FDA-Public Use
  Company Number: US-ENDO PHARMACEUTICALS INC-2017-007324

PATIENT
  Age: 31 Year
  Sex: Male
  Weight: 74.83 kg

DRUGS (5)
  1. XIAFLEX [Suspect]
     Active Substance: COLLAGENASE CLOSTRIDIUM HISTOLYTICUM
     Dosage: UNKNOWN, FIRST INJECTION OF FIRST CYCLE
     Route: 026
     Dates: start: 20170601
  2. XIAFLEX [Suspect]
     Active Substance: COLLAGENASE CLOSTRIDIUM HISTOLYTICUM
     Indication: PEYRONIE^S DISEASE
     Dosage: UNKNOWN, SECOND INJECTION OF SECOND CYCLE
     Route: 026
     Dates: start: 20170724, end: 20170724
  3. FISH OIL [Concomitant]
     Active Substance: FISH OIL
     Indication: PRODUCT USED FOR UNKNOWN INDICATION
     Dosage: UNK UNKNOWN, UNKNOWN
     Route: 065
  4. XIAFLEX [Suspect]
     Active Substance: COLLAGENASE CLOSTRIDIUM HISTOLYTICUM
     Dosage: UNKNOWN, SECOND INJECTION OF FIRST CYCLE
     Route: 026
     Dates: start: 20170605
  5. XIAFLEX [Suspect]
     Active Substance: COLLAGENASE CLOSTRIDIUM HISTOLYTICUM
     Dosage: UNK UNKNOWN, FIRST INJECTION OF SECOND CYCLE
     Route: 026
     Dates: start: 20170717

REACTIONS (2)
  - Inappropriate schedule of drug administration [Unknown]
  - Fracture of penis [Unknown]

NARRATIVE: CASE EVENT DATE: 201706
